FAERS Safety Report 16881062 (Version 1)
Quarter: 2019Q4

REPORT INFORMATION
  Report Type: Spontaneous
  Country: IT (occurrence: IT)
  Receive Date: 20191003
  Receipt Date: 20191003
  Transmission Date: 20200122
  Serious: Yes (Hospitalization)
  Sender: FDA-Public Use
  Company Number: IT-MYLANLABS-2019M1090420

PATIENT
  Age: 48 Year
  Sex: Female

DRUGS (2)
  1. LANSOPRAZOLO MYLAN 30 MG CAPSULE GASTRORESISTENTI [Suspect]
     Active Substance: LANSOPRAZOLE
     Indication: HIATUS HERNIA
     Dosage: 1 DOSAGE FORM (30 MG)
     Route: 048
     Dates: start: 20190922, end: 201909
  2. MILVANE [Concomitant]
     Indication: CONTRACEPTION

REACTIONS (3)
  - Nausea [Recovered/Resolved]
  - Erythema [Recovered/Resolved]
  - Pruritus [Recovered/Resolved]

NARRATIVE: CASE EVENT DATE: 20190922
